FAERS Safety Report 18133146 (Version 1)
Quarter: 2020Q3

REPORT INFORMATION
  Report Type: Spontaneous
  Country: US (occurrence: US)
  Receive Date: 20200811
  Receipt Date: 20200811
  Transmission Date: 20201103
  Serious: No
  Sender: FDA-Public Use
  Company Number: US-GLENMARK PHARMACEUTICALS-2020GMK048441

PATIENT

DRUGS (2)
  1. ZONISAMIDE CAPSULES USP, 50 MG [Suspect]
     Active Substance: ZONISAMIDE
     Indication: SEIZURE PROPHYLAXIS
     Dosage: 2 DOSAGE FORM, HS (TWO CAPSULES EVERY EVENING)
     Route: 048
     Dates: start: 202006, end: 202006
  2. METOPROLOL. [Concomitant]
     Active Substance: METOPROLOL
     Indication: BLOOD PRESSURE ABNORMAL
     Dosage: UNK
     Route: 065

REACTIONS (5)
  - Product substitution issue [Unknown]
  - Malaise [Unknown]
  - Insomnia [Unknown]
  - Product use in unapproved indication [Unknown]
  - Feeling jittery [Unknown]

NARRATIVE: CASE EVENT DATE: 202006
